FAERS Safety Report 22155483 (Version 4)
Quarter: 2023Q2

REPORT INFORMATION
  Report Type: Report from Study
  Country: US (occurrence: US)
  Receive Date: 20230330
  Receipt Date: 20230531
  Transmission Date: 20230722
  Serious: No
  Sender: FDA-Public Use
  Company Number: US-DECIPHERA PHARMACEUTICALS LLC-2023US000240

PATIENT
  Sex: Female

DRUGS (5)
  1. QINLOCK [Suspect]
     Active Substance: RIPRETINIB
     Indication: Gastrointestinal stromal tumour
     Dosage: 150 MILLIGRAM, QD
  2. QINLOCK [Suspect]
     Active Substance: RIPRETINIB
     Dosage: 100 MILLIGRAM, QD
  3. QINLOCK [Suspect]
     Active Substance: RIPRETINIB
     Dosage: 50 MILLIGRAM QD
  4. QINLOCK [Suspect]
     Active Substance: RIPRETINIB
     Dosage: UNK
  5. QINLOCK [Suspect]
     Active Substance: RIPRETINIB
     Dosage: 50 MILLIGRAM QOD

REACTIONS (9)
  - Adverse event [Not Recovered/Not Resolved]
  - Cardiac disorder [Unknown]
  - Pain [Unknown]
  - Illness [Unknown]
  - Mobility decreased [Unknown]
  - Palpitations [Unknown]
  - Dizziness [Unknown]
  - Underdose [Unknown]
  - Inappropriate schedule of product administration [Unknown]

NARRATIVE: CASE EVENT DATE: 20221201
